FAERS Safety Report 10374842 (Version 1)
Quarter: 2014Q3

REPORT INFORMATION
  Report Type: Spontaneous
  Country: JP (occurrence: JP)
  Receive Date: 20140811
  Receipt Date: 20140811
  Transmission Date: 20150326
  Serious: Yes (Death, Other)
  Sender: FDA-Public Use
  Company Number: JP-ROCHE-1446082

PATIENT
  Age: 75 Year
  Sex: Male

DRUGS (2)
  1. CISPLATIN. [Concomitant]
     Active Substance: CISPLATIN
     Indication: GASTRIC CANCER RECURRENT
     Route: 041
  2. XELODA [Suspect]
     Active Substance: CAPECITABINE
     Indication: GASTRIC CANCER RECURRENT
     Route: 048

REACTIONS (8)
  - Malaise [Not Recovered/Not Resolved]
  - Subdural hygroma [Unknown]
  - Status epilepticus [Fatal]
  - Leukoencephalopathy [Fatal]
  - Decreased appetite [Not Recovered/Not Resolved]
  - Convulsion [Unknown]
  - Fall [Unknown]
  - Restlessness [Unknown]
